FAERS Safety Report 20310128 (Version 3)
Quarter: 2022Q1

REPORT INFORMATION
  Report Type: Report from Study
  Country: US (occurrence: US)
  Receive Date: 20220107
  Receipt Date: 20220210
  Transmission Date: 20220423
  Serious: Yes (Other)
  Sender: FDA-Public Use
  Company Number: US-ORGANON-O2201USA000442

PATIENT
  Age: 25 Year
  Sex: Female
  Weight: 78.005 kg

DRUGS (2)
  1. IMPLANON [Suspect]
     Active Substance: ETONOGESTREL
     Indication: Contraception
     Dosage: ONE IMPLANT OF 68 MILLIGRAM EVERY THREE YEARS, LEFT ARM
     Route: 059
     Dates: start: 20211012, end: 20211202
  2. NEXPLANON [Concomitant]
     Active Substance: ETONOGESTREL
     Dosage: 1 DOSAGE FORM
     Route: 059
     Dates: end: 20211012

REACTIONS (3)
  - Device expulsion [Recovered/Resolved]
  - Implant site discharge [Recovered/Resolved]
  - Implant site reaction [Recovered/Resolved]

NARRATIVE: CASE EVENT DATE: 20211012
